FAERS Safety Report 6325697-0 (Version None)
Quarter: 2009Q3

REPORT INFORMATION
  Report Type: 
  Country: None (occurrence: None)
  Receive Date: 20090824
  Receipt Date: 20090724
  Transmission Date: 20100115
  Serious: No
  Sender: FDA-Public Use
  Company Number: US-ABBOTT-09P-163-0587086-00

PATIENT
  Sex: Male
  Weight: 90.8 kg

DRUGS (7)
  1. NIASPAN [Suspect]
     Indication: BLOOD TRIGLYCERIDES INCREASED
     Route: 048
     Dates: start: 20090718, end: 20090722
  2. HYDROCODONE [Concomitant]
     Indication: PAIN
     Dosage: 5-500 MG 1-2 TABLETS PRN DAILY
     Route: 048
  3. GABAPENTIN [Concomitant]
     Indication: PAIN
     Route: 048
  4. XANAX [Concomitant]
     Indication: ANXIETY
  5. SLEEPING MEDICATION [Concomitant]
     Indication: DRUG USE FOR UNKNOWN INDICATION
  6. RETRO-VIRAL MEDICATIONS [Concomitant]
     Indication: HIV INFECTION
  7. HIGH BLOOD PRESSURE MEDICATION [Concomitant]
     Indication: HYPERTENSION

REACTIONS (5)
  - DIZZINESS [None]
  - HYPOTENSION [None]
  - INCORRECT DRUG ADMINISTRATION DURATION [None]
  - NAUSEA [None]
  - SKIN EXFOLIATION [None]
